FAERS Safety Report 24239765 (Version 1)
Quarter: 2024Q3

REPORT INFORMATION
  Report Type: Spontaneous
  Country: US (occurrence: US)
  Receive Date: 20240822
  Receipt Date: 20240822
  Transmission Date: 20241016
  Serious: No
  Sender: AVADEL CNS PHARMA
  Company Number: US-AVADEL CNS PHARMACEUTICALS, LLC-2024AVA01247

PATIENT
  Sex: Female

DRUGS (3)
  1. LUMRYZ [Suspect]
     Active Substance: SODIUM OXYBATE
     Dosage: 7.5 G
  2. LUMRYZ [Suspect]
     Active Substance: SODIUM OXYBATE
     Dosage: 9 G
  3. ARMODAFINIL [Concomitant]
     Active Substance: ARMODAFINIL

REACTIONS (7)
  - Insomnia [Recovered/Resolved]
  - Dry eye [Not Recovered/Not Resolved]
  - Therapeutic product effect prolonged [Not Recovered/Not Resolved]
  - Somnolence [Not Recovered/Not Resolved]
  - Feeling drunk [Not Recovered/Not Resolved]
  - Anxiety [Recovered/Resolved]
  - Tremor [Recovered/Resolved]
